FAERS Safety Report 24066138 (Version 1)
Quarter: 2024Q3

REPORT INFORMATION
  Report Type: Spontaneous
  Country: CH (occurrence: CH)
  Receive Date: 20240709
  Receipt Date: 20240709
  Transmission Date: 20241017
  Serious: Yes (Other)
  Sender: JOHNSON AND JOHNSON
  Company Number: CH-JNJFOC-20240706508

PATIENT
  Sex: Female

DRUGS (1)
  1. RILPIVIRINE [Suspect]
     Active Substance: RILPIVIRINE
     Indication: Product used for unknown indication
     Route: 030

REACTIONS (4)
  - Muscle hypertrophy [Unknown]
  - Injection site nodule [Unknown]
  - Injection site discharge [Unknown]
  - Underdose [Unknown]

NARRATIVE: CASE EVENT DATE: 20230501
